FAERS Safety Report 7945791-8 (Version None)
Quarter: 2011Q4

REPORT INFORMATION
  Report Type: 
  Country: None (occurrence: None)
  Receive Date: 20111129
  Receipt Date: 20111122
  Transmission Date: 20120403
  Serious: Yes (Other)
  Sender: FDA-Public Use
  Company Number: NL-PFIZER INC-2011286388

PATIENT
  Age: 65 Year
  Sex: Male
  Weight: 81 kg

DRUGS (1)
  1. TOVIAZ [Suspect]
     Indication: INCONTINENCE
     Dosage: 4 MG, 1X/DAY
     Dates: start: 20110825, end: 20110902

REACTIONS (1)
  - PLEURAL EFFUSION [None]
